FAERS Safety Report 9931666 (Version 1)
Quarter: 2014Q1

REPORT INFORMATION
  Report Type: Spontaneous
  Country: None (occurrence: US)
  Receive Date: 20140228
  Receipt Date: 20140228
  Transmission Date: 20141002
  Serious: Yes (Hospitalization)
  Sender: FDA-Public Use
  Company Number: US-TARO PHARMACEUTICALS U.S.A., INC-2014SUN00410

PATIENT
  Age: 44 Year
  Sex: Female

DRUGS (3)
  1. LIDOCAINE HYDROCHLORIDE [Suspect]
     Indication: ENDOSCOPY
     Route: 065
  2. PROPOFOL [Concomitant]
  3. CIDEX [Concomitant]

REACTIONS (1)
  - Anaphylactic reaction [Recovered/Resolved]
